FAERS Safety Report 4996806-0 (Version None)
Quarter: 2006Q2

REPORT INFORMATION
  Report Type: 
  Country: None (occurrence: None)
  Receive Date: 20060509
  Receipt Date: 20060207
  Transmission Date: 20061013
  Serious: Yes (Hospitalization, Disabling)
  Sender: FDA-Public Use
  Company Number: DE-MERCK-0602DEU00048

PATIENT
  Age: 53 Year
  Sex: Male

DRUGS (1)
  1. VIOXX [Suspect]
     Route: 065

REACTIONS (8)
  - ASTIGMATISM [None]
  - CATARACT [None]
  - CEREBRAL THROMBOSIS [None]
  - COLOUR BLINDNESS [None]
  - HYPERMETROPIA [None]
  - HYPERTENSION [None]
  - PRESBYOPIA [None]
  - RETINAL VEIN OCCLUSION [None]
